FAERS Safety Report 15677405 (Version 4)
Quarter: 2019Q1

REPORT INFORMATION
  Report Type: Report from Study
  Country: HK (occurrence: HK)
  Receive Date: 20181130
  Receipt Date: 20190225
  Transmission Date: 20190417
  Serious: Yes (Hospitalization)
  Sender: FDA-Public Use
  Company Number: HK-PFIZER INC-2018491075

PATIENT
  Age: 60 Year
  Sex: Female
  Weight: 60 kg

DRUGS (13)
  1. BROMHEXINE HCL [Concomitant]
     Active Substance: BROMHEXINE HYDROCHLORIDE
     Indication: COUGH
     Dosage: 8 MG, 3X/DAY
     Dates: start: 20181012
  2. FAMOTIDINE. [Concomitant]
     Active Substance: FAMOTIDINE
     Indication: PROPHYLAXIS
     Dosage: 20 MG, 2X/DAY
     Dates: start: 20181012
  3. PARACETAMOL [Concomitant]
     Active Substance: ACETAMINOPHEN
     Indication: PAIN PROPHYLAXIS
     Dosage: 500 MG, 4X/DAY
     Dates: start: 20181012
  4. ASPIRIN (E.C.) [Concomitant]
     Active Substance: ASPIRIN
     Indication: CARDIAC DISORDER
     Dosage: 80 MG, 1X/DAY
     Route: 048
     Dates: start: 20141112
  5. PHOLCODINE [Concomitant]
     Active Substance: PHOLCODINE
     Indication: COUGH
     Dosage: 10 ML, 3X/DAY
     Dates: start: 20181016, end: 20181029
  6. SALBUTAMOL [Concomitant]
     Active Substance: ALBUTEROL
     Indication: DYSPNOEA
     Dosage: 2 PUFFS, AS NEEDED
     Dates: start: 20181012, end: 20181029
  7. LORLATINIB [Suspect]
     Active Substance: LORLATINIB
     Dosage: 75 MG, DAILY
     Route: 048
     Dates: start: 20181102
  8. BISACODYL. [Concomitant]
     Active Substance: BISACODYL
     Indication: CONSTIPATION
     Dosage: 1 DF, AS NEEDED
     Route: 054
     Dates: start: 20181016, end: 20181029
  9. ZOPICLONE [Concomitant]
     Active Substance: ZOPICLONE
     Indication: INSOMNIA
     Dosage: 3.75 MG, 1X/DAY
     Dates: start: 20181012
  10. LORLATINIB [Suspect]
     Active Substance: LORLATINIB
     Indication: NON-SMALL CELL LUNG CANCER
     Dosage: 100 MG, 1X/DAY
     Route: 048
     Dates: start: 20181016, end: 20181030
  11. POTASSIUM CHLORIDE. [Concomitant]
     Active Substance: POTASSIUM CHLORIDE
     Indication: SUPPLEMENTATION THERAPY
     Dosage: 600 MG, 1X/DAY
     Dates: start: 20181012, end: 20181018
  12. CODEINE PHOSPHATE [Concomitant]
     Active Substance: CODEINE PHOSPHATE
     Indication: COUGH
     Dosage: 30 MG, AS NEEDED
     Dates: start: 20181012, end: 20181018
  13. LACTULOSE. [Concomitant]
     Active Substance: LACTULOSE
     Indication: CONSTIPATION
     Dosage: 10 ML, 2X/DAY
     Dates: start: 20181012

REACTIONS (2)
  - Anaemia [Recovered/Resolved]
  - Electrocardiogram QT prolonged [Recovered/Resolved]

NARRATIVE: CASE EVENT DATE: 20181030
